FAERS Safety Report 10181920 (Version 4)
Quarter: 2014Q3

REPORT INFORMATION
  Report Type: Report from Study
  Country: US (occurrence: ES)
  Receive Date: 20140519
  Receipt Date: 20140915
  Transmission Date: 20150326
  Serious: Yes (Hospitalization)
  Sender: FDA-Public Use
  Company Number: ES-TEVA-482432USA

PATIENT
  Age: 72 Year
  Sex: Male
  Weight: 101 kg

DRUGS (5)
  1. PLACEBO [Suspect]
     Active Substance: UNSPECIFIED INGREDIENT
     Indication: MANTLE CELL LYMPHOMA
     Route: 048
     Dates: start: 20140414, end: 20140430
  2. OMEPRAZOLE. [Concomitant]
     Active Substance: OMEPRAZOLE
     Indication: GASTROINTESTINAL DISORDER THERAPY
     Route: 048
  3. BENDAMUSTINE HYDROCHLORIDE [Suspect]
     Active Substance: BENDAMUSTINE HYDROCHLORIDE
     Indication: MANTLE CELL LYMPHOMA
     Dosage: 199 MG, DAY 1 AND DAY 2 OF EACH CYCLE
     Route: 042
     Dates: start: 20140414
  4. LAMIVUDINE. [Concomitant]
     Active Substance: LAMIVUDINE
     Indication: PROPHYLAXIS
     Route: 048
     Dates: start: 20140414
  5. RITUXIMAB [Suspect]
     Active Substance: RITUXIMAB
     Indication: MANTLE CELL LYMPHOMA
     Dosage: 831 MG,  ONCE IN 28 DAYS
     Route: 042
     Dates: start: 20140414

REACTIONS (9)
  - Respiratory tract infection [Recovered/Resolved]
  - Asthenia [None]
  - Deafness [None]
  - Pyrexia [None]
  - Vomiting [None]
  - Deafness neurosensory [None]
  - Cough [None]
  - Hypotension [None]
  - Abdominal pain [None]

NARRATIVE: CASE EVENT DATE: 20140430
